FAERS Safety Report 6151366-6 (Version None)
Quarter: 2009Q2

REPORT INFORMATION
  Report Type: 
  Country: None (occurrence: None)
  Receive Date: 20090410
  Receipt Date: 20090331
  Transmission Date: 20091009
  Serious: No
  Sender: FDA-Public Use
  Company Number: US-JNJFOC-20090400339

PATIENT
  Sex: Female
  Weight: 58.06 kg

DRUGS (7)
  1. FENTANYL TRANSDERMAL SYSTEM [Suspect]
     Indication: BACK PAIN
     Route: 062
  2. FENTANYL TRANSDERMAL SYSTEM [Suspect]
     Indication: BONE PAIN
     Route: 062
  3. PREDNISONE [Concomitant]
     Indication: RENAL DISORDER
     Route: 048
  4. SOMA [Concomitant]
     Indication: MUSCLE SPASMS
     Route: 048
  5. PROGRAF [Concomitant]
     Indication: RENAL DISORDER
     Route: 048
  6. ACIPHEX [Concomitant]
     Indication: DYSPEPSIA
     Route: 048
  7. MYFORTIC [Concomitant]
     Indication: RENAL DISORDER
     Route: 048

REACTIONS (6)
  - FATIGUE [None]
  - HYPERHIDROSIS [None]
  - MALAISE [None]
  - NAUSEA [None]
  - PRODUCT QUALITY ISSUE [None]
  - TREATMENT NONCOMPLIANCE [None]
